FAERS Safety Report 20896084 (Version 3)
Quarter: 2022Q3

REPORT INFORMATION
  Report Type: Report from Study
  Country: CA (occurrence: CA)
  Receive Date: 20220531
  Receipt Date: 20220808
  Transmission Date: 20221027
  Serious: Yes (Other)
  Sender: FDA-Public Use
  Company Number: CA-BRISTOL-MYERS SQUIBB COMPANY-BMS-2021-002864

PATIENT
  Age: 78 Year
  Sex: Female
  Weight: 95.30 kg

DRUGS (6)
  1. ORENCIA [Suspect]
     Active Substance: ABATACEPT
     Indication: Rheumatoid arthritis
     Dosage: 1000 MILLIGRAM, Q4WK
     Route: 042
     Dates: start: 20120727
  2. ORENCIA [Suspect]
     Active Substance: ABATACEPT
     Dosage: 1000 MILLIGRAM, Q4WK
     Route: 042
     Dates: start: 20120925
  3. ORENCIA [Suspect]
     Active Substance: ABATACEPT
     Dosage: 750 MILLIGRAM, Q4WK
     Route: 042
  4. ORENCIA [Suspect]
     Active Substance: ABATACEPT
     Route: 042
     Dates: start: 20120925
  5. LOSARTAN POTASSIUM [Concomitant]
     Active Substance: LOSARTAN POTASSIUM
     Indication: Hypotension
     Dosage: UNK
     Route: 065
  6. METHOTREXATE SODIUM [Concomitant]
     Active Substance: METHOTREXATE SODIUM
     Indication: Rheumatoid arthritis
     Route: 065
     Dates: start: 199510

REACTIONS (12)
  - Inappropriate schedule of product administration [Unknown]
  - Platelet count decreased [Not Recovered/Not Resolved]
  - Haemoglobin decreased [Unknown]
  - Fatigue [Unknown]
  - Blood pressure systolic increased [Unknown]
  - Blood pressure diastolic decreased [Unknown]
  - Blood pressure increased [Unknown]
  - Dehydration [Unknown]
  - Pollakiuria [Unknown]
  - Prescribed overdose [Unknown]
  - Weight decreased [Unknown]
  - White blood cell count decreased [Unknown]

NARRATIVE: CASE EVENT DATE: 20220101
